FAERS Safety Report 20854684 (Version 1)
Quarter: 2022Q2

REPORT INFORMATION
  Report Type: Spontaneous
  Country: US (occurrence: None)
  Receive Date: 20220519
  Receipt Date: 20220519
  Transmission Date: 20220721
  Serious: No
  Sender: FDA-Public Use
  Company Number: None

PATIENT
  Sex: Female
  Weight: 45.36 kg

DRUGS (14)
  1. EVEROLIMUS [Suspect]
     Active Substance: EVEROLIMUS
     Indication: Breast cancer
     Dosage: OTHER QUANTITY : 2.5MG;?FREQUENCY : DAILY;?
     Route: 048
     Dates: start: 202110, end: 20220518
  2. VITAMIN B12 [Suspect]
     Active Substance: CYANOCOBALAMIN
  3. VITAMIN D3 [Concomitant]
     Active Substance: CHOLECALCIFEROL
  4. LIPITOR [Concomitant]
     Active Substance: ATORVASTATIN CALCIUM
  5. LISINOPRIL [Concomitant]
     Active Substance: LISINOPRIL
  6. MAGNESIUM [Concomitant]
     Active Substance: MAGNESIUM
  7. GLUCONATE [Concomitant]
  8. NASAL MIST [Concomitant]
     Active Substance: OXYMETAZOLINE HYDROCHLORIDE
  9. NEXIUM [Concomitant]
     Active Substance: ESOMEPRAZOLE MAGNESIUM
  10. VITAMINS [Concomitant]
     Active Substance: VITAMINS
  11. VITAMIN C [Concomitant]
     Active Substance: ASCORBIC ACID
  12. BIOTIN [Concomitant]
     Active Substance: BIOTIN
  13. EXEMESTANE [Concomitant]
     Active Substance: EXEMESTANE
  14. DEXAMETHASONE [Concomitant]
     Active Substance: DEXAMETHASONE

REACTIONS (1)
  - Disease progression [None]
